FAERS Safety Report 5311977-4 (Version None)
Quarter: 2007Q2

REPORT INFORMATION
  Report Type: 
  Country: None (occurrence: None)
  Receive Date: 20070430
  Receipt Date: 20060724
  Transmission Date: 20071010
  Serious: No
  Sender: FDA-Public Use
  Company Number: 2006UW14939

PATIENT
  Sex: Female

DRUGS (3)
  1. NEXIUM [Suspect]
     Route: 048
  2. PENICILLIN [Concomitant]
  3. PROBENACID [Concomitant]

REACTIONS (2)
  - LIMB INJURY [None]
  - PAIN [None]
